FAERS Safety Report 20304833 (Version 2)
Quarter: 2022Q1

REPORT INFORMATION
  Report Type: Spontaneous
  Country: IT (occurrence: IT)
  Receive Date: 20220106
  Receipt Date: 20220223
  Transmission Date: 20220423
  Serious: Yes (Other)
  Sender: FDA-Public Use
  Company Number: IT-Fresenius Kabi-FK202114446

PATIENT
  Age: 10 Year
  Sex: Male

DRUGS (2)
  1. METHOTREXATE SODIUM [Suspect]
     Active Substance: METHOTREXATE SODIUM
     Indication: Chronic recurrent multifocal osteomyelitis
     Dosage: UNK
  2. ADALIMUMAB [Suspect]
     Active Substance: ADALIMUMAB
     Indication: Crohn^s disease
     Dosage: UNK

REACTIONS (7)
  - Colitis [Recovered/Resolved]
  - Diarrhoea haemorrhagic [Recovered/Resolved]
  - Faecal calprotectin increased [Recovered/Resolved]
  - Weight decreased [Recovered/Resolved]
  - Crohn^s disease [Recovered/Resolved]
  - C-reactive protein increased [Recovered/Resolved]
  - Drug ineffective [Recovered/Resolved]
